FAERS Safety Report 5070289-7 (Version None)
Quarter: 2006Q3

REPORT INFORMATION
  Report Type: 
  Country: None (occurrence: None)
  Receive Date: 20060802
  Receipt Date: 20060720
  Transmission Date: 20061208
  Serious: Yes (Other)
  Sender: FDA-Public Use
  Company Number: TRP_0818_2006

PATIENT
  Age: 45 Year
  Sex: Female

DRUGS (6)
  1. RIBASPHERE [Suspect]
     Indication: HEPATITIS C
     Dosage: DF PO
     Route: 048
     Dates: start: 20060224
  2. PEG-INTRON [Suspect]
     Indication: HEPATITIS C
     Dosage: DF SC
     Route: 058
     Dates: start: 20060224
  3. BYETTA (SYNTHETIC EXENATIDE-4) [Concomitant]
  4. DIOVAN [Concomitant]
  5. LEXAPRO [Concomitant]
  6. METFORMIN [Concomitant]

REACTIONS (10)
  - ERYTHEMA [None]
  - HYPERKERATOSIS [None]
  - NAUSEA [None]
  - OEDEMA PERIPHERAL [None]
  - PAIN IN EXTREMITY [None]
  - SKIN CHAPPED [None]
  - SKIN INFECTION [None]
  - TOOTH ABSCESS [None]
  - VOMITING [None]
  - WOUND SECRETION [None]
